FAERS Safety Report 5512245-8 (Version None)
Quarter: 2007Q4

REPORT INFORMATION
  Report Type: 
  Country: None (occurrence: None)
  Receive Date: 20071107
  Receipt Date: 20071022
  Transmission Date: 20080405
  Serious: Yes (Hospitalization, Other)
  Sender: FDA-Public Use
  Company Number: CHNY2007KR03608

PATIENT
  Age: 7 Year
  Sex: Male

DRUGS (4)
  1. ACETYLSALICYLIC ACID (NCH) (ACETYLSALICYLIC ACID) [Suspect]
     Indication: PLATELET AGGREGATION INHIBITION
     Dosage: 5 MG/KG, QD
  2. IBUPROFEN [Suspect]
     Indication: ARTHRITIS
     Dosage: 8.0 MG/KG 3 TIMES DAILY
  3. IMMUNOGLOBULINS (IMMUNOGLOBULINS) [Concomitant]
  4. ANTIRHEUMATIC (INCL.ANTIPHLOGISTICS) (NO INGREDIENTS/SUBSTANCES) [Concomitant]

REACTIONS (6)
  - CORONARY ARTERY ANEURYSM [None]
  - CORONARY ARTERY OCCLUSION [None]
  - DRUG INTERACTION [None]
  - JUVENILE ARTHRITIS [None]
  - MYOCARDIAL ISCHAEMIA [None]
  - VENTRICULAR DYSFUNCTION [None]
